FAERS Safety Report 17136397 (Version 2)
Quarter: 2020Q1

REPORT INFORMATION
  Report Type: Report from Study
  Country: US (occurrence: US)
  Receive Date: 20191210
  Receipt Date: 20200106
  Transmission Date: 20200409
  Serious: No
  Sender: FDA-Public Use
  Company Number: NVSC2019US016273

PATIENT
  Sex: Male

DRUGS (1)
  1. COSENTYX [Suspect]
     Active Substance: SECUKINUMAB
     Indication: PSORIASIS
     Dosage: 300 MG, Q4W (BATCH NUMBER WAS UNKNOWN)
     Route: 058
     Dates: start: 20190717

REACTIONS (2)
  - Dry skin [Not Recovered/Not Resolved]
  - Macule [Not Recovered/Not Resolved]
